FAERS Safety Report 13829423 (Version 1)
Quarter: 2017Q3

REPORT INFORMATION
  Report Type: Spontaneous
  Country: US (occurrence: US)
  Receive Date: 20170803
  Receipt Date: 20170803
  Transmission Date: 20171127
  Serious: Yes (Disabling)
  Sender: FDA-Public Use
  Company Number: None

PATIENT
  Sex: Female
  Weight: 79.45 kg

DRUGS (6)
  1. MIRENA [Suspect]
     Active Substance: LEVONORGESTREL
  2. CELEXA [Concomitant]
     Active Substance: CITALOPRAM HYDROBROMIDE
  3. WELLBUTRIN [Concomitant]
     Active Substance: BUPROPION HYDROCHLORIDE
  4. AZELASTINE [Concomitant]
     Active Substance: AZELASTINE
  5. FLONASE [Concomitant]
     Active Substance: FLUTICASONE PROPIONATE
  6. PRENATAL VITAMIN [Concomitant]
     Active Substance: VITAMINS

REACTIONS (13)
  - Vomiting [None]
  - Decreased appetite [None]
  - Nausea [None]
  - Feeling abnormal [None]
  - Pain [None]
  - Panic attack [None]
  - Palpitations [None]
  - Chest pain [None]
  - Thought blocking [None]
  - Muscle spasms [None]
  - Irritable bowel syndrome [None]
  - Dizziness [None]
  - Anxiety [None]

NARRATIVE: CASE EVENT DATE: 20170725
